FAERS Safety Report 9486213 (Version 1)
Quarter: 2013Q3

REPORT INFORMATION
  Report Type: Spontaneous
  Country: US (occurrence: None)
  Receive Date: 20130827
  Receipt Date: 20130827
  Transmission Date: 20140515
  Serious: Yes (Disabling)
  Sender: FDA-Public Use
  Company Number: None

PATIENT
  Age: 64 None
  Sex: Female
  Weight: 104.33 kg

DRUGS (2)
  1. PROZAC [Suspect]
     Indication: NERVOUS SYSTEM DISORDER
     Dosage: PROZAC 2 TIMES A DAY 1 AT BED
     Route: 048
  2. PROZAC [Suspect]
     Indication: DEPRESSION
     Dosage: PROZAC 2 TIMES A DAY 1 AT BED
     Route: 048

REACTIONS (27)
  - Blood glucose decreased [None]
  - Tremor [None]
  - Hunger [None]
  - Thirst [None]
  - Hyperhidrosis [None]
  - Middle insomnia [None]
  - Constipation [None]
  - Abnormal dreams [None]
  - Insomnia [None]
  - Vomiting [None]
  - Intestinal obstruction [None]
  - Asthenia [None]
  - Dyspnoea [None]
  - Heart rate increased [None]
  - Dyskinesia [None]
  - Depressed mood [None]
  - Crying [None]
  - Weight increased [None]
  - Weight loss poor [None]
  - Hallucination, visual [None]
  - Social avoidant behaviour [None]
  - Feeling abnormal [None]
  - Memory impairment [None]
  - Suicidal ideation [None]
  - Tremor [None]
  - Muscle twitching [None]
  - Tardive dyskinesia [None]
